FAERS Safety Report 5372166-0 (Version None)
Quarter: 2007Q2

REPORT INFORMATION
  Report Type: 
  Country: None (occurrence: None)
  Receive Date: 20070627
  Receipt Date: 20070615
  Transmission Date: 20071010
  Serious: Yes (Death)
  Sender: FDA-Public Use
  Company Number: NO-SANOFI-SYNTHELABO-A01200601359

PATIENT
  Sex: Female

DRUGS (11)
  1. SIMVASTATIN [Concomitant]
     Indication: DRUG USE FOR UNKNOWN INDICATION
     Dosage: UNK
     Route: 065
  2. PREDNISOLONE [Concomitant]
     Indication: DRUG USE FOR UNKNOWN INDICATION
     Dosage: UNK
     Route: 065
  3. NEXIUM [Concomitant]
     Indication: DRUG USE FOR UNKNOWN INDICATION
     Dosage: UNK
     Route: 065
  4. FURIX [Concomitant]
     Indication: DRUG USE FOR UNKNOWN INDICATION
     Dosage: UNK
     Route: 065
  5. SELO ZOK [Concomitant]
     Indication: DRUG USE FOR UNKNOWN INDICATION
     Route: 065
  6. PLAVIX [Suspect]
     Indication: ANGINA UNSTABLE
     Dosage: 300 MG ONCE FOLLOWED BY 75 MG DAILY
     Route: 048
     Dates: start: 20051120, end: 20051130
  7. PLAVIX [Suspect]
     Indication: MYOCARDIAL INFARCTION
     Dosage: 300 MG ONCE FOLLOWED BY 75 MG DAILY
     Route: 048
     Dates: start: 20051120, end: 20051130
  8. ACETYLSALICYLIC ACID SRT [Concomitant]
     Indication: ANGINA UNSTABLE
     Route: 048
     Dates: start: 20051120, end: 20051120
  9. ACETYLSALICYLIC ACID SRT [Concomitant]
     Indication: MYOCARDIAL INFARCTION
     Route: 048
     Dates: start: 20051120, end: 20051120
  10. KLEXANE [Suspect]
     Indication: MYOCARDIAL INFARCTION
     Dosage: 80 MG IN MORNING + 60 MG IN EVENING
     Route: 058
     Dates: start: 20051120, end: 20051130
  11. KLEXANE [Suspect]
     Indication: ANGINA UNSTABLE
     Dosage: 80 MG IN MORNING + 60 MG IN EVENING
     Route: 058
     Dates: start: 20051120, end: 20051130

REACTIONS (4)
  - HAEMOGLOBIN DECREASED [None]
  - MYOCARDIAL INFARCTION [None]
  - PERITONEAL HAEMATOMA [None]
  - TRAUMATIC HAEMATOMA [None]
